FAERS Safety Report 8926037 (Version 1)
Quarter: 2012Q4

REPORT INFORMATION
  Report Type: 
  Country: FR (occurrence: FR)
  Receive Date: 20121126
  Receipt Date: 20121126
  Transmission Date: 20130627
  Serious: Yes (Hospitalization, Other)
  Sender: FDA-Public Use
  Company Number: FR-009507513-1211FRA007804

PATIENT
  Sex: Female
  Weight: 74 kg

DRUGS (6)
  1. VICTRELIS [Suspect]
     Indication: HEPATITIS C
     Dosage: 200 mg, Unknown
     Route: 048
     Dates: start: 20120310, end: 201210
  2. NEORECORMON [Suspect]
     Indication: ANAEMIA
     Dosage: UNK
     Route: 058
     Dates: start: 20120706, end: 201210
  3. PEGASYS [Concomitant]
     Indication: HEPATITIS C
     Dosage: UNK
     Dates: start: 20120205
  4. COPEGUS [Concomitant]
     Indication: HEPATITIS C
     Dosage: 1 g, qd
     Dates: start: 20120205
  5. COPEGUS [Concomitant]
     Dosage: 800 mg, qd
  6. LEVOTHYROX [Concomitant]
     Indication: HYPOTHYROIDISM

REACTIONS (2)
  - Pulmonary embolism [Recovered/Resolved]
  - Phlebitis [Recovered/Resolved]
